FAERS Safety Report 5207395-X (Version None)
Quarter: 2007Q1

REPORT INFORMATION
  Report Type: 
  Country: None (occurrence: None)
  Receive Date: 20070112
  Receipt Date: 20070108
  Transmission Date: 20070707
  Serious: Yes (Other)
  Sender: FDA-Public Use
  Company Number: FR-SHR-FR-2007-000288

PATIENT
  Sex: Female

DRUGS (1)
  1. MIRENA [Suspect]
     Dosage: 20 A?G/DAY, CONT
     Route: 015
     Dates: start: 20060501, end: 20070101

REACTIONS (4)
  - AMENORRHOEA [None]
  - ANGIOEDEMA [None]
  - HYPERSENSITIVITY [None]
  - OEDEMA [None]
